FAERS Safety Report 5876938-5 (Version None)
Quarter: 2008Q3

REPORT INFORMATION
  Report Type: 
  Country: None (occurrence: None)
  Receive Date: 20080908
  Receipt Date: 20080908
  Transmission Date: 20090109
  Serious: Yes (Other)
  Sender: FDA-Public Use
  Company Number: None

PATIENT
  Sex: Male
  Weight: 52.6173 kg

DRUGS (2)
  1. FENTANYL-25 [Suspect]
     Indication: ARTHRALGIA
     Dosage: ONE PATCH EVERY 3 DAYS CUTANEOUS
     Route: 003
     Dates: start: 20080830, end: 20080901
  2. FENTANYL-25 [Suspect]
     Indication: PAIN
     Dosage: ONE PATCH EVERY 3 DAYS CUTANEOUS
     Route: 003
     Dates: start: 20080830, end: 20080901

REACTIONS (4)
  - DEVICE FAILURE [None]
  - DRUG INEFFECTIVE [None]
  - ECONOMIC PROBLEM [None]
  - PAIN [None]
